FAERS Safety Report 11098775 (Version 1)
Quarter: 2015Q2

REPORT INFORMATION
  Report Type: Spontaneous
  Country: AT (occurrence: AT)
  Receive Date: 20150507
  Receipt Date: 20150507
  Transmission Date: 20150821
  Serious: Yes (Other)
  Sender: FDA-Public Use
  Company Number: AT-BRISTOL-MYERS SQUIBB COMPANY-BMS-2015-025153

PATIENT
  Age: 8 Year
  Sex: Female
  Weight: 60 kg

DRUGS (4)
  1. TARIVID                            /00731801/ [Suspect]
     Active Substance: OFLOXACIN
     Indication: PYELONEPHRITIS
     Dosage: 400 MG, QD
     Route: 065
  2. ELIQUIS [Suspect]
     Active Substance: APIXABAN
     Indication: CEREBROVASCULAR ACCIDENT PROPHYLAXIS
     Dosage: 10 MG, UNK
     Route: 048
     Dates: start: 201411, end: 201503
  3. NEUROTOP [Suspect]
     Active Substance: CARBAMAZEPINE
     Indication: EPILEPSY
     Dosage: 600 MG, QD
     Route: 065
  4. SIMVASTATIN. [Concomitant]
     Active Substance: SIMVASTATIN
     Indication: PRODUCT USED FOR UNKNOWN INDICATION
     Dosage: 40 MG, UNK
     Route: 048

REACTIONS (2)
  - Anaemia [Recovered/Resolved]
  - Epistaxis [Recovered/Resolved]
